FAERS Safety Report 5407926-0 (Version None)
Quarter: 2007Q3

REPORT INFORMATION
  Report Type: 
  Country: None (occurrence: None)
  Receive Date: 20070713
  Receipt Date: 20070430
  Transmission Date: 20080115
  Serious: No
  Sender: FDA-Public Use
  Company Number: 2007SP001583

PATIENT
  Age: 68 Year
  Sex: Male
  Weight: 104.3273 kg

DRUGS (9)
  1. LUNESTA [Suspect]
     Indication: INSOMNIA
     Dosage: 3 MG; PRN; ORAL
     Route: 048
     Dates: start: 20050101
  2. TRAZODINE [Suspect]
     Dosage: 50 MG; HS; ORAL
     Route: 048
     Dates: start: 19920101
  3. AMLODIPINE BESYLATE [Concomitant]
  4. LISINOPRIL [Concomitant]
  5. METOPROLOL SUCCINATE [Concomitant]
  6. REQUIP [Concomitant]
  7. SIMVASTATIN [Concomitant]
  8. DOXAZOSYN [Concomitant]
  9. ALLOPURINOL [Concomitant]

REACTIONS (1)
  - SOMNOLENCE [None]
